FAERS Safety Report 5235875-X (Version None)
Quarter: 2007Q1

REPORT INFORMATION
  Report Type: 
  Country: None (occurrence: None)
  Receive Date: 20070212
  Receipt Date: 20070130
  Transmission Date: 20070707
  Serious: Yes (Hospitalization)
  Sender: FDA-Public Use
  Company Number: PHRM2003FR01494

PATIENT
  Age: 57 Year
  Sex: Female
  Weight: 79 kg

DRUGS (1)
  1. TOFRANIL [Suspect]
     Indication: BIPOLAR I DISORDER
     Dosage: 20 MG/DAY
     Route: 048
     Dates: start: 19760101, end: 19880301

REACTIONS (14)
  - BLOOD PRESSURE DECREASED [None]
  - CARDIAC FAILURE CONGESTIVE [None]
  - CARDIOMEGALY [None]
  - CONGESTIVE CARDIOMYOPATHY [None]
  - DYSPNOEA EXERTIONAL [None]
  - EJECTION FRACTION DECREASED [None]
  - ELECTROCARDIOGRAM T WAVE INVERSION [None]
  - HEPATOJUGULAR REFLUX [None]
  - OEDEMA PERIPHERAL [None]
  - PULMONARY OEDEMA [None]
  - RALES [None]
  - TACHYCARDIA [None]
  - VENTRICULAR HYPOKINESIA [None]
  - VENTRICULAR INTERNAL DIAMETER ABNORMAL [None]
